FAERS Safety Report 16832012 (Version 1)
Quarter: 2019Q3

REPORT INFORMATION
  Report Type: Other
  Country: VN (occurrence: VN)
  Receive Date: 20190920
  Receipt Date: 20190920
  Transmission Date: 20191005
  Serious: Yes (Life-Threatening, Hospitalization, Other)
  Sender: FDA-Public Use
  Company Number: VN-DENTSPLY-2019SCDP000508

PATIENT
  Age: 73 Year
  Sex: Male

DRUGS (5)
  1. LIDOCAINE. [Suspect]
     Active Substance: LIDOCAINE
     Indication: ANAESTHESIA
     Dosage: 300 MILLIGRAM (6 MG/KG), TOTAL
     Dates: start: 201606, end: 201606
  2. FENTANYL. [Concomitant]
     Active Substance: FENTANYL
     Indication: SEDATION
     Dosage: 100 MICROGRAM
     Route: 042
     Dates: start: 201606
  3. PROPOFOL. [Suspect]
     Active Substance: PROPOFOL
     Indication: SEDATION
     Dosage: 20 MILLIGRAM
     Dates: start: 201606
  4. ROPIVACAINE. [Suspect]
     Active Substance: ROPIVACAINE HYDROCHLORIDE
     Indication: ANAESTHESIA
     Dosage: 50 MILLIGRAM ROPIVACAINE (1 MG/KG) IN 25 ML, TOTAL
     Dates: start: 201606, end: 201606
  5. OXYGEN. [Concomitant]
     Active Substance: OXYGEN
     Indication: PRODUCT USED FOR UNKNOWN INDICATION
     Dosage: 2 LITER, FACE MASK
     Route: 055
     Dates: start: 201606

REACTIONS (9)
  - Local anaesthetic systemic toxicity [Recovered/Resolved]
  - Confusional state [Recovered/Resolved]
  - Neurotoxicity [Recovered/Resolved]
  - Unresponsive to stimuli [Recovered/Resolved]
  - Apnoea [Recovered/Resolved]
  - Incorrect dose administered [Recovered/Resolved]
  - Disturbance in attention [Recovered/Resolved]
  - Hypoaesthesia [Recovered/Resolved]
  - Loss of consciousness [Recovered/Resolved]

NARRATIVE: CASE EVENT DATE: 201606
